FAERS Safety Report 13243931 (Version 1)
Quarter: 2017Q1

REPORT INFORMATION
  Report Type: Spontaneous
  Country: US (occurrence: US)
  Receive Date: 20170216
  Receipt Date: 20170216
  Transmission Date: 20170428
  Serious: Yes (Other)
  Sender: FDA-Public Use
  Company Number: US-CELGENEUS-USA-2017024130

PATIENT
  Age: 52 Year
  Sex: Female

DRUGS (1)
  1. THALOMID [Suspect]
     Active Substance: THALIDOMIDE
     Indication: PYODERMA GANGRENOSUM
     Dosage: 100 MILLIGRAM
     Route: 048
     Dates: start: 20170113

REACTIONS (2)
  - Tremor [Unknown]
  - Swelling [Unknown]

NARRATIVE: CASE EVENT DATE: 20170113
